FAERS Safety Report 6335092-6 (Version None)
Quarter: 2009Q3

REPORT INFORMATION
  Report Type: 
  Country: None (occurrence: None)
  Receive Date: 20090831
  Receipt Date: 20090824
  Transmission Date: 20100115
  Serious: Yes (Death)
  Sender: FDA-Public Use
  Company Number: DK-ROCHE-592988

PATIENT
  Sex: Female

DRUGS (3)
  1. CAPECITABINE [Suspect]
     Dosage: CONTINUOUSLY EACH 3 WEEKS, REPEATED EVERY 3 WEEKS; LAST DOSE PRIOR TO SAE ON 19 MAY 2005
     Route: 048
     Dates: start: 20050519
  2. EPIRUBICIN [Suspect]
     Dosage: 20 MIN INFUSION ON DAY 1, REPEATED EVERY 3 WEEKS; LAST DOSE PRIOR TO SAE ON 19 MAY 2005
     Route: 042
     Dates: start: 20050519
  3. OXALIPLATIN [Suspect]
     Dosage: 30 MIN INFUSION ON DAY 1, REPEATED EVERY 3 WEEKS; LAST DOSE PRIOR TO SAE ON 19 MAY 2005.
     Route: 042
     Dates: start: 20050519

REACTIONS (2)
  - GASTROINTESTINAL HAEMORRHAGE [None]
  - HAEMATEMESIS [None]
